FAERS Safety Report 25262898 (Version 1)
Quarter: 2025Q2

REPORT INFORMATION
  Report Type: Spontaneous
  Country: US (occurrence: US)
  Receive Date: 20250502
  Receipt Date: 20250502
  Transmission Date: 20250716
  Serious: No
  Sender: ABBVIE
  Company Number: US-ABBVIE-6263800

PATIENT

DRUGS (1)
  1. LATISSE [Suspect]
     Active Substance: BIMATOPROST
     Indication: Product used for unknown indication
     Route: 065
     Dates: start: 202504

REACTIONS (3)
  - Erythema [Unknown]
  - Skin irritation [Unknown]
  - Skin tightness [Unknown]

NARRATIVE: CASE EVENT DATE: 20250401
